FAERS Safety Report 14155027 (Version 1)
Quarter: 2017Q4

REPORT INFORMATION
  Report Type: Spontaneous
  Country: US (occurrence: US)
  Receive Date: 20171103
  Receipt Date: 20171103
  Transmission Date: 20180321
  Serious: No
  Sender: FDA-Public Use
  Company Number: US-CIPLA LTD.-2016US20620

PATIENT

DRUGS (10)
  1. BUTALBITAL [Concomitant]
     Active Substance: BUTALBITAL
     Indication: MIGRAINE
     Dosage: UNK, PRN
     Route: 065
  2. CAFFEINE. [Concomitant]
     Active Substance: CAFFEINE
     Indication: MIGRAINE
     Dosage: UNK, PRN
     Route: 065
  3. OMEPRAZOLE MAGNESIUM. [Concomitant]
     Active Substance: OMEPRAZOLE MAGNESIUM
     Indication: GASTROOESOPHAGEAL REFLUX DISEASE
     Dosage: 20.6 MG, QD
     Route: 065
  4. ESCITALOPRAM [Suspect]
     Active Substance: ESCITALOPRAM OXALATE
     Dosage: 10 MG, QD, UNKNOWN MANUFACTURER
     Route: 065
     Dates: start: 20161006, end: 20161014
  5. CENTRUM MULTIVITAMIN [Concomitant]
     Dosage: UNK, QD, EVERY MORNING
     Route: 065
  6. ACETAMINOPHEN. [Concomitant]
     Active Substance: ACETAMINOPHEN
     Indication: MIGRAINE
     Dosage: UNK, PRN
     Route: 065
  7. ESCITALOPRAM [Suspect]
     Active Substance: ESCITALOPRAM OXALATE
     Dosage: 10 MG, QD, CAMBER PHARMA
     Route: 065
     Dates: start: 20160611
  8. ESCITALOPRAM [Suspect]
     Active Substance: ESCITALOPRAM OXALATE
     Dosage: 10 MG, UNK, CIPLA
     Route: 065
     Dates: start: 20161025, end: 20161026
  9. ESCITALOPRAM [Suspect]
     Active Substance: ESCITALOPRAM OXALATE
     Indication: ANXIETY
     Dosage: 10 MG, QD, LEXAPRO
     Route: 065
  10. ESCITALOPRAM [Suspect]
     Active Substance: ESCITALOPRAM OXALATE
     Dosage: 10 MG, UNK, CIPLA
     Route: 065
     Dates: end: 20160820

REACTIONS (3)
  - Pruritus [Recovered/Resolved]
  - Product substitution issue [Unknown]
  - Constipation [Recovered/Resolved]
